FAERS Safety Report 10572877 (Version 5)
Quarter: 2015Q2

REPORT INFORMATION
  Report Type: Report from Study
  Country: JP (occurrence: JP)
  Receive Date: 20141110
  Receipt Date: 20150422
  Transmission Date: 20150821
  Serious: Yes (Life-Threatening, Hospitalization)
  Sender: FDA-Public Use
  Company Number: JP-UCBSA-2014016925

PATIENT
  Age: 78 Year
  Sex: Female
  Weight: 43.8 kg

DRUGS (8)
  1. METOLATE [Suspect]
     Active Substance: METHOTREXATE
     Indication: RHEUMATOID ARTHRITIS
     Dosage: 2 MG
     Route: 048
     Dates: start: 2012, end: 20140710
  2. METOLATE [Suspect]
     Active Substance: METHOTREXATE
     Dosage: 4 MG
     Route: 048
     Dates: start: 20140711, end: 20140803
  3. METOLATE [Suspect]
     Active Substance: METHOTREXATE
     Dosage: 6 MG
     Route: 048
     Dates: start: 20140804, end: 20140817
  4. ISCOTIN [Concomitant]
     Active Substance: ISONIAZID
     Indication: PROPHYLAXIS
     Dosage: DAILY: 200 MG
     Route: 048
     Dates: start: 20140624, end: 20141025
  5. CERTOLIZUMAB PEGOL RA [Suspect]
     Active Substance: CERTOLIZUMAB PEGOL
     Indication: RHEUMATOID ARTHRITIS
     Dosage: 400 MG, EV 2 WEEKS(QOW)
     Route: 058
     Dates: start: 20140625, end: 20140723
  6. CERTOLIZUMAB PEGOL RA [Suspect]
     Active Substance: CERTOLIZUMAB PEGOL
     Dosage: 200 MG, EV 2 WEEKS(QOW)
     Route: 058
     Dates: start: 20140804, end: 20141017
  7. METOLATE [Suspect]
     Active Substance: METHOTREXATE
     Dosage: 8 MG
     Route: 048
     Dates: start: 20140818, end: 20141025
  8. FOLIAMIN [Concomitant]
     Active Substance: FOLIC ACID
     Indication: PRODUCT USED FOR UNKNOWN INDICATION
     Dosage: DAILY DOSE: 5 MG
     Route: 048
     Dates: start: 2012

REACTIONS (1)
  - Pneumocystis jirovecii pneumonia [Recovered/Resolved]

NARRATIVE: CASE EVENT DATE: 20141018
